FAERS Safety Report 16889962 (Version 1)
Quarter: 2019Q4

REPORT INFORMATION
  Report Type: Spontaneous
  Country: US (occurrence: US)
  Receive Date: 20191004
  Receipt Date: 20191004
  Transmission Date: 20200122
  Serious: Yes (Hospitalization)
  Sender: FDA-Public Use
  Company Number: None

PATIENT
  Age: 56 Year
  Sex: Female

DRUGS (16)
  1. HORIZANT [Concomitant]
     Active Substance: GABAPENTIN ENACARBIL
  2. RANITIDINE. [Concomitant]
     Active Substance: RANITIDINE
  3. TIZANIDINE. [Concomitant]
     Active Substance: TIZANIDINE
  4. ESTROG/MTEST [Concomitant]
  5. MONTELUKAST [Concomitant]
     Active Substance: MONTELUKAST SODIUM
  6. ESTODOLAC [Concomitant]
  7. HYDROCO/APAP [Concomitant]
     Active Substance: ACETAMINOPHEN\HYDROCODONE
  8. LANSOPRAZOLE. [Concomitant]
     Active Substance: LANSOPRAZOLE
  9. HYDROXYCHLOR [Concomitant]
     Active Substance: HYDROXYCHLOROQUINE
  10. NAPROXEN. [Concomitant]
     Active Substance: NAPROXEN
  11. PREDNISONE. [Concomitant]
     Active Substance: PREDNISONE
  12. STIOLTO RESPIMAT [Concomitant]
     Active Substance: OLODATEROL HYDROCHLORIDE\TIOTROPIUM BROMIDE MONOHYDRATE
  13. BENLYSTA [Suspect]
     Active Substance: BELIMUMAB
     Indication: PRODUCT USED FOR UNKNOWN INDICATION
     Dosage: ?          OTHER FREQUENCY:WEEKLY;?
     Route: 058
     Dates: start: 20190109
  14. VITAMIN D [Concomitant]
     Active Substance: VITAMIN D NOS
  15. DEXTROAMPHET SACCHARAT, AMPHET ASPARTATE, DEXTROAMPHET SULFATE AND AMPHET SULFAT [Concomitant]
     Active Substance: AMPHETAMINE ASPARTATE\AMPHETAMINE SULFATE\DEXTROAMPHETAMINE SACCHARATE\DEXTROAMPHETAMINE SULFATE
  16. METHOCARBAM [Concomitant]
     Active Substance: METHOCARBAMOL

REACTIONS (2)
  - Therapy cessation [None]
  - Femur fracture [None]

NARRATIVE: CASE EVENT DATE: 20190909
